FAERS Safety Report 15304633 (Version 2)
Quarter: 2018Q3

REPORT INFORMATION
  Report Type: Report from Study
  Country: JP (occurrence: JP)
  Receive Date: 20180821
  Receipt Date: 20180905
  Transmission Date: 20181010
  Serious: Yes (Life-Threatening, Hospitalization, Other)
  Sender: FDA-Public Use
  Company Number: JP-ELI_LILLY_AND_COMPANY-JP201610010464

PATIENT
  Age: 84 Year
  Sex: Male

DRUGS (76)
  1. CRESTOR [Concomitant]
     Active Substance: ROSUVASTATIN CALCIUM
     Dosage: UNK, UNKNOWN
     Route: 048
     Dates: start: 20170222
  2. AMLODIPINE [Concomitant]
     Active Substance: AMLODIPINE BESYLATE
     Indication: HYPERTENSION
     Dosage: UNK, UNKNOWN
     Route: 048
  3. BIOFERMIN                          /01617201/ [Concomitant]
     Active Substance: BACILLUS SUBTILIS\LACTOBACILLUS ACIDOPHILUS\STREPTOCOCCUS FAECAIS
     Dosage: UNK, UNKNOWN
     Route: 048
     Dates: start: 20161217, end: 20161223
  4. BIOFERMIN                          /01617201/ [Concomitant]
     Active Substance: BACILLUS SUBTILIS\LACTOBACILLUS ACIDOPHILUS\STREPTOCOCCUS FAECAIS
     Dosage: UNK, UNKNOWN
     Route: 048
     Dates: start: 20170222
  5. FASTIC [Concomitant]
     Active Substance: NATEGLINIDE
     Dosage: UNK, UNKNOWN
     Route: 048
     Dates: start: 20170112, end: 20170217
  6. METOCLOPRAMIDE. [Concomitant]
     Active Substance: METOCLOPRAMIDE
     Dosage: UNK, UNKNOWN
     Route: 042
     Dates: start: 20170220, end: 20170224
  7. PROTAMINE SULFATE. [Concomitant]
     Active Substance: PROTAMINE SULFATE
     Dosage: UNK, UNKNOWN
     Route: 042
     Dates: start: 20170220, end: 20170220
  8. ATARAX?P                           /00058402/ [Concomitant]
     Active Substance: HYDROXYZINE HYDROCHLORIDE
     Dosage: UNK, UNKNOWN
     Route: 042
     Dates: start: 20170220, end: 20170220
  9. FIRSTCIN [Concomitant]
     Active Substance: CEFOZOPRAN HYDROCHLORIDE
     Dosage: UNK, UNKNOWN
     Route: 042
     Dates: start: 20170223, end: 20170227
  10. TEPRENONE [Concomitant]
     Active Substance: TEPRENONE
     Dosage: UNK, UNKNOWN
     Route: 048
     Dates: start: 20170222
  11. LUNESTA [Concomitant]
     Active Substance: ESZOPICLONE
     Dosage: UNK, UNKNOWN
     Route: 048
     Dates: start: 20170224
  12. METHYCOBAL [Concomitant]
     Active Substance: METHYLCOBALAMIN
     Dosage: UNK
     Route: 048
     Dates: start: 20170303
  13. MYOCOR [Concomitant]
     Active Substance: NITROGLYCERIN
     Dosage: UNK, UNKNOWN
     Route: 042
     Dates: start: 20170220, end: 20170221
  14. ASPARA POTASSIUM [Concomitant]
     Active Substance: POTASSIUM ASPARTATE
     Dosage: UNK, UNKNOWN
     Route: 042
     Dates: start: 20170220, end: 20170224
  15. ENALAPRIL MALEATE. [Concomitant]
     Active Substance: ENALAPRIL MALEATE
     Dosage: UNK, UNKNOWN
     Route: 048
     Dates: start: 20170225
  16. TAKELDA [Suspect]
     Active Substance: ASPIRIN\LANSOPRAZOLE
     Dosage: 15 MG, QD
     Route: 065
     Dates: start: 20160310
  17. BISONO [Concomitant]
     Active Substance: BISOPROLOL
     Indication: ATRIAL FIBRILLATION
     Dosage: UNK, UNKNOWN
     Route: 062
     Dates: start: 20160309, end: 20170220
  18. FERRUM                             /00023502/ [Concomitant]
     Dosage: UNK
     Route: 048
     Dates: end: 20160426
  19. FASTIC [Concomitant]
     Active Substance: NATEGLINIDE
     Dosage: UNK, UNKNOWN
     Route: 048
     Dates: start: 20170112, end: 20170122
  20. FENTANYL. [Concomitant]
     Active Substance: FENTANYL
     Dosage: UNK, UNKNOWN
     Route: 042
     Dates: start: 20170220, end: 20170220
  21. SOSEGON                            /00052101/ [Concomitant]
     Active Substance: PENTAZOCINE
     Dosage: UNK, UNKNOWN
     Route: 042
     Dates: start: 20170220, end: 20170220
  22. FUROSEMIDE                         /00032602/ [Concomitant]
     Active Substance: FUROSEMIDE
     Dosage: UNK, UNKNOWN
     Route: 042
     Dates: start: 20170221, end: 20170224
  23. MEROPENEM. [Concomitant]
     Active Substance: MEROPENEM
     Dosage: UNK, UNKNOWN
     Route: 042
     Dates: start: 20170228, end: 20170316
  24. ROZEREM [Concomitant]
     Active Substance: RAMELTEON
     Dosage: UNK, UNKNOWN
     Route: 048
     Dates: start: 20170225
  25. LYRICA [Concomitant]
     Active Substance: PREGABALIN
     Dosage: UNK, UNKNOWN
     Route: 048
     Dates: start: 20170302
  26. SULPIRIDE [Concomitant]
     Active Substance: SULPIRIDE
     Dosage: UNK, UNKNOWN
     Route: 048
     Dates: start: 20170302
  27. PRASUGREL HYDROCHLORIDE [Suspect]
     Active Substance: PRASUGREL HYDROCHLORIDE
     Dosage: 3.75 MG, QD
     Route: 048
     Dates: start: 20160310, end: 20170119
  28. TAKELDA [Suspect]
     Active Substance: ASPIRIN\LANSOPRAZOLE
     Indication: PROPHYLAXIS
     Dosage: 100 MG, QD
     Route: 048
     Dates: start: 20160309, end: 20160408
  29. TAKELDA [Suspect]
     Active Substance: ASPIRIN\LANSOPRAZOLE
     Dosage: 100 MG, QD
     Route: 065
  30. CRESTOR [Concomitant]
     Active Substance: ROSUVASTATIN CALCIUM
     Indication: HYPERLIPIDAEMIA
     Dosage: UNK, UNKNOWN
     Route: 048
     Dates: start: 20160309, end: 20170220
  31. URIEF [Concomitant]
     Active Substance: SILODOSIN
     Indication: HYPERTONIC BLADDER
     Dosage: UNK, UNKNOWN
     Route: 048
  32. FERROUS SULFATE. [Concomitant]
     Active Substance: FERROUS SULFATE
     Dosage: UNK, UNKNOWN
     Route: 048
     Dates: start: 20161228, end: 20170220
  33. HAPTOGLOBIN [Concomitant]
     Dosage: UNK, UNKNOWN
     Route: 042
     Dates: start: 20170220, end: 20170220
  34. CALCICOL [Concomitant]
     Active Substance: CALCIUM GLUCONATE
     Dosage: UNK, UNKNOWN
     Route: 042
     Dates: start: 20170220, end: 20170224
  35. KAYTWO N [Concomitant]
     Active Substance: MENATETRENONE
     Dosage: UNK, UNKNOWN
     Route: 042
     Dates: start: 20170220, end: 20170220
  36. SERENACE [Concomitant]
     Active Substance: HALOPERIDOL
     Dosage: UNK, UNKNOWN
     Route: 042
     Dates: start: 20170221, end: 20170221
  37. HUMALOG [Concomitant]
     Active Substance: INSULIN LISPRO
     Dosage: UNK, UNKNOWN
     Route: 058
     Dates: start: 20170224, end: 20170306
  38. BAYASPIRIN [Concomitant]
     Active Substance: ASPIRIN
     Dosage: UNK, UNKNOWN
     Route: 048
     Dates: start: 20170222
  39. MAGMITT [Concomitant]
     Active Substance: MAGNESIUM OXIDE
     Dosage: UNK, UNKNOWN
     Route: 048
     Dates: start: 20170222
  40. GENTAMICIN. [Concomitant]
     Active Substance: GENTAMICIN
     Dosage: UNK, UNKNOWN
     Route: 050
     Dates: start: 20170312
  41. PRASUGREL HYDROCHLORIDE [Suspect]
     Active Substance: PRASUGREL HYDROCHLORIDE
     Dosage: 20 MG, QD
     Route: 048
     Dates: start: 20160409, end: 20160409
  42. FASTIC [Concomitant]
     Active Substance: NATEGLINIDE
     Dosage: UNK, UNKNOWN
     Route: 048
     Dates: start: 20170307, end: 20170321
  43. SENNOSIDE                          /00571901/ [Concomitant]
     Active Substance: SENNOSIDES A AND B
  44. FAMOTIDINE. [Concomitant]
     Active Substance: FAMOTIDINE
     Dosage: UNK, UNKNOWN
     Route: 042
     Dates: start: 20170220, end: 20170223
  45. SHINBIT [Concomitant]
     Dosage: UNK, UNKNOWN
     Route: 042
     Dates: start: 20170220, end: 20170225
  46. BRIDION [Concomitant]
     Active Substance: SUGAMMADEX
     Dosage: UNK, UNKNOWN
     Route: 042
     Dates: start: 20170221, end: 20170221
  47. VASOLAN                            /00014302/ [Concomitant]
     Active Substance: VERAPAMIL HYDROCHLORIDE
     Dosage: UNK, UNKNOWN
     Route: 042
     Dates: start: 20170302, end: 20170302
  48. URSODEOXYCHOLIC ACID [Concomitant]
     Active Substance: URSODIOL
     Dosage: UNK, UNKNOWN
     Route: 048
     Dates: start: 20170222
  49. PONSTEL [Concomitant]
     Active Substance: MEFENAMIC ACID
     Dosage: UNK, UNKNOWN
     Route: 048
     Dates: start: 20170307
  50. BESOFTEN [Concomitant]
     Active Substance: PENTOSAN POLYSULFATE SODIUM
     Dosage: UNK, UNKNOWN
     Route: 050
     Dates: start: 20170317
  51. PRASUGREL HYDROCHLORIDE [Suspect]
     Active Substance: PRASUGREL HYDROCHLORIDE
     Indication: ACUTE MYOCARDIAL INFARCTION
     Dosage: 20 MG, QD
     Route: 048
     Dates: start: 20160309, end: 20160309
  52. PRASUGREL HYDROCHLORIDE [Suspect]
     Active Substance: PRASUGREL HYDROCHLORIDE
     Dosage: UNK UNK, DAILY
     Route: 048
     Dates: start: 20170125, end: 20170211
  53. NEXIUM CONTROL [Concomitant]
     Active Substance: ESOMEPRAZOLE MAGNESIUM
     Dosage: UNK, UNKNOWN
     Route: 048
     Dates: start: 20170222
  54. HEPARIN [Concomitant]
     Active Substance: HEPARIN SODIUM
     Dosage: 7000 IU, UNKNOWN
     Route: 065
  55. PANTHENYL [Concomitant]
     Dosage: UNK, UNKNOWN
     Route: 042
     Dates: start: 20170220, end: 20170224
  56. MEYLON [Concomitant]
     Active Substance: SODIUM BICARBONATE
     Dosage: UNK, UNKNOWN
     Route: 042
     Dates: start: 20170220, end: 20170220
  57. SAMSCA [Concomitant]
     Active Substance: TOLVAPTAN
     Dosage: UNK, UNKNOWN
     Route: 048
     Dates: start: 20170222
  58. NICORANDIL [Concomitant]
     Active Substance: NICORANDIL
     Dosage: UNK, UNKNOWN
     Route: 048
     Dates: start: 20170222, end: 20170224
  59. FRANDOL [Concomitant]
     Active Substance: ISOSORBIDE DINITRATE
     Dosage: UNK, UNKNOWN
     Route: 050
     Dates: start: 20170223
  60. NIFEDIPINE. [Concomitant]
     Active Substance: NIFEDIPINE
     Dosage: UNK, UNKNOWN
     Route: 048
     Dates: start: 20170224
  61. KENALOG [Concomitant]
     Active Substance: TRIAMCINOLONE ACETONIDE
     Dosage: UNK, UNKNOWN
     Route: 050
     Dates: start: 20170303
  62. NEXIUM CONTROL [Concomitant]
     Active Substance: ESOMEPRAZOLE MAGNESIUM
     Dosage: UNK, UNKNOWN
     Route: 048
     Dates: start: 20160408, end: 20170220
  63. BESOFTEN [Concomitant]
     Active Substance: PENTOSAN POLYSULFATE SODIUM
     Dosage: UNK, UNKNOWN
     Route: 050
     Dates: start: 20170220
  64. BROMHEXINE                         /00004702/ [Concomitant]
     Dosage: UNK, UNKNOWN
     Route: 042
     Dates: start: 20170221, end: 20170222
  65. FUROSEMIDE. [Concomitant]
     Active Substance: FUROSEMIDE
     Dosage: UNK, UNKNOWN
     Route: 048
     Dates: start: 20170222
  66. FERROUS CITRATE NA [Concomitant]
     Active Substance: SODIUM FERROUS CITRATE
     Dosage: UNK, UNKNOWN
     Route: 048
     Dates: start: 20170222
  67. TEGRETOL [Concomitant]
     Active Substance: CARBAMAZEPINE
     Dosage: UNK, UNKNOWN
     Route: 048
     Dates: start: 20170222, end: 20170227
  68. XARELTO [Suspect]
     Active Substance: RIVAROXABAN
     Indication: PROPHYLAXIS
     Dosage: 10 MG, QD
     Route: 048
     Dates: start: 20160314
  69. BETANIS [Concomitant]
     Active Substance: MIRABEGRON
     Dosage: UNK, UNKNOWN
     Route: 048
  70. DIAZEPAM. [Concomitant]
     Active Substance: DIAZEPAM
     Dosage: UNK, UNKNOWN
     Route: 048
     Dates: start: 20161216, end: 20161216
  71. BENZALIN                           /00036201/ [Concomitant]
     Active Substance: NITRAZEPAM
     Dosage: UNK, UNKNOWN
     Route: 048
     Dates: start: 20170126, end: 20170126
  72. HUMULIN R [Concomitant]
     Active Substance: INSULIN HUMAN
     Dosage: UNK, UNKNOWN
     Route: 042
     Dates: start: 20170220, end: 20170224
  73. ALBUMINAR [Concomitant]
     Active Substance: ALBUMIN HUMAN
     Dosage: UNK, UNKNOWN
     Route: 042
     Dates: start: 20170220, end: 20170221
  74. NICARDIPINE [Concomitant]
     Active Substance: NICARDIPINE
     Dosage: UNK, UNKNOWN
     Route: 042
     Dates: start: 20170220, end: 20170221
  75. SUNRYTHM [Concomitant]
     Active Substance: PILSICAINIDE HYDROCHLORIDE
     Dosage: UNK, UNKNOWN
     Route: 042
     Dates: start: 20170302, end: 20170302
  76. CLEANAL [Concomitant]
     Active Substance: FUDOSTEINE
     Dosage: UNK, UNKNOWN
     Route: 048
     Dates: start: 20170222

REACTIONS (4)
  - Pericardial haemorrhage [Recovering/Resolving]
  - Gastrointestinal haemorrhage [Recovering/Resolving]
  - Mitral valve incompetence [Recovering/Resolving]
  - Coronary artery stenosis [Recovering/Resolving]

NARRATIVE: CASE EVENT DATE: 20160408
